FAERS Safety Report 8440908-3 (Version None)
Quarter: 2012Q2

REPORT INFORMATION
  Report Type: 
  Country: None (occurrence: None)
  Receive Date: 20120615
  Receipt Date: 20120607
  Transmission Date: 20120825
  Serious: Yes (Hospitalization)
  Sender: FDA-Public Use
  Company Number: US-BAYER-2012-024490

PATIENT
  Age: 50 Year
  Sex: Female
  Weight: 79.365 kg

DRUGS (14)
  1. SYNTHROID [Concomitant]
     Indication: HYPOTHYROIDISM
  2. ORAL CONTRACEPTIVE NOS [Concomitant]
     Indication: UTERINE LEIOMYOMA
  3. PEPCID [Concomitant]
     Indication: DYSPEPSIA
     Dosage: 20 MG, DAILY TO TWICE DAILY
     Route: 048
     Dates: start: 20080517, end: 20080720
  4. LOVENOX [Concomitant]
     Indication: DEEP VEIN THROMBOSIS
  5. YAZ [Suspect]
     Dosage: UNK
     Dates: start: 20070101, end: 20080517
  6. INDAPAMIDE [Concomitant]
     Indication: BLOOD PRESSURE ABNORMAL
     Dosage: 2.5 MG, DAILY
     Route: 048
     Dates: start: 19830101
  7. PEPCID [Concomitant]
     Indication: GASTROOESOPHAGEAL REFLUX DISEASE
  8. COUMADIN [Concomitant]
     Indication: PULMONARY EMBOLISM
  9. LOVENOX [Concomitant]
     Indication: PULMONARY EMBOLISM
  10. SYNTHROID [Concomitant]
     Indication: POST PROCEDURAL HYPOTHYROIDISM
     Dosage: 100-150 MCG, DAILY
     Dates: start: 19830101
  11. COUMADIN [Concomitant]
     Indication: DEEP VEIN THROMBOSIS
  12. PRILOSEC [Concomitant]
  13. INDAPAMIDE [Concomitant]
     Indication: DIURETIC THERAPY
  14. PINDOLOL [Concomitant]
     Indication: BLOOD PRESSURE MANAGEMENT
     Dosage: 5 TO 10 MG, DAILY TO TWICW DAILY
     Route: 048
     Dates: start: 19830101

REACTIONS (8)
  - PULMONARY EMBOLISM [None]
  - PAIN [None]
  - GENERAL PHYSICAL HEALTH DETERIORATION [None]
  - ANXIETY [None]
  - INJURY [None]
  - EMOTIONAL DISTRESS [None]
  - DEEP VEIN THROMBOSIS [None]
  - DEPRESSION [None]
